FAERS Safety Report 16164425 (Version 3)
Quarter: 2020Q2

REPORT INFORMATION
  Report Type: Report from Study
  Country: US (occurrence: US)
  Receive Date: 20190405
  Receipt Date: 20200629
  Transmission Date: 20200713
  Serious: Yes (Hospitalization, Other)
  Sender: FDA-Public Use
  Company Number: US-SA-2017SA266256

PATIENT

DRUGS (5)
  1. INSULIN GLARGINE [Suspect]
     Active Substance: INSULIN GLARGINE
     Indication: TYPE 2 DIABETES MELLITUS
     Dosage: 80 U, QD
     Route: 058
  2. INSULIN GLARGINE [Suspect]
     Active Substance: INSULIN GLARGINE
     Dosage: 65 U, QD
     Route: 058
  3. INSULIN GLULISINE [Suspect]
     Active Substance: INSULIN GLULISINE
     Indication: TYPE 2 DIABETES MELLITUS
     Dosage: WITH MEALS
  4. INSULIN GLULISINE [Suspect]
     Active Substance: INSULIN GLULISINE
     Dosage: SLIDING SCALE
  5. INSULIN GLARGINE [Suspect]
     Active Substance: INSULIN GLARGINE
     Dosage: 70 U, QD
     Route: 058

REACTIONS (12)
  - Visual impairment [Not Recovered/Not Resolved]
  - Product dose omission [Unknown]
  - Blindness [Not Recovered/Not Resolved]
  - Patella fracture [Unknown]
  - Sinus disorder [Recovered/Resolved]
  - Dyspnoea [Recovered/Resolved]
  - Diabetic retinopathy [Not Recovered/Not Resolved]
  - Blood glucose increased [Not Recovered/Not Resolved]
  - Hypersensitivity [Recovered/Resolved]
  - Cardiac pacemaker insertion [Unknown]
  - Knee arthroplasty [Unknown]
  - Cardiac failure congestive [Recovered/Resolved]

NARRATIVE: CASE EVENT DATE: 201710
